FAERS Safety Report 14745835 (Version 3)
Quarter: 2020Q4

REPORT INFORMATION
  Report Type: Spontaneous
  Country: FR (occurrence: FR)
  Receive Date: 20180411
  Receipt Date: 20201118
  Transmission Date: 20210113
  Serious: Yes (Hospitalization, Other)
  Sender: FDA-Public Use
  Company Number: FR-AUROBINDO-AUR-APL-2018-019889

PATIENT
  Age: 76 Year
  Sex: Female
  Weight: 61 kg

DRUGS (5)
  1. MEROPENEM ARROW [Suspect]
     Active Substance: MEROPENEM
     Indication: PNEUMONIA
     Dosage: 24 GRAM, ONCE A DAY
     Route: 040
     Dates: start: 20171013, end: 20171016
  2. MEROPENEM ARROW [Suspect]
     Active Substance: MEROPENEM
     Dosage: 3 GRAM, ONCE A DAY
     Route: 040
     Dates: start: 20171003, end: 20171008
  3. VANCOMYCINE SANDOZ [Suspect]
     Active Substance: VANCOMYCIN
     Indication: PNEUMONIA
     Dosage: 2 GRAM, ONCE A DAY
     Route: 041
     Dates: start: 20170928, end: 20171001
  4. AUGMENTIN [Suspect]
     Active Substance: AMOXICILLIN\CLAVULANATE POTASSIUM
     Indication: PNEUMONIA
     Dosage: 6 GRAM, ONCE A DAY
     Route: 040
     Dates: start: 20170921, end: 20170923
  5. VANCOMYCINE SANDOZ [Suspect]
     Active Substance: VANCOMYCIN
     Dosage: 2 GRAM, ONCE A DAY
     Route: 041
     Dates: start: 20171013, end: 20171016

REACTIONS (4)
  - Rash erythematous [Recovered/Resolved]
  - Eosinophilia [Recovered/Resolved]
  - Pruritus [Recovered/Resolved]
  - Tubulointerstitial nephritis [Recovered/Resolved]

NARRATIVE: CASE EVENT DATE: 20171016
